FAERS Safety Report 9149082 (Version 2)
Quarter: 2013Q1

REPORT INFORMATION
  Report Type: Spontaneous
  Country: FR (occurrence: None)
  Receive Date: 20130131
  Receipt Date: 20130315
  Transmission Date: 20140127
  Serious: Yes (Hospitalization)
  Sender: FDA-Public Use
  Company Number: 219944

PATIENT
  Age: 59 Year
  Sex: Male

DRUGS (6)
  1. DAIVOBET [Suspect]
     Indication: PSORIASIS
     Route: 061
     Dates: start: 20121102, end: 20121103
  2. BUSPIRONE HYDROCHLORIDE [Suspect]
     Indication: PRODUCT USED FOR UNKNOWN INDICATION
     Route: 048
     Dates: start: 20121102, end: 20121103
  3. ANTI-INTERLEUKINE 17 (MONOCLONAL ANTIBODIES) [Concomitant]
  4. AMG 827 (MONOCLONAL ANTIBODIES) [Concomitant]
  5. BRODALUMAB (MONOCLONAL ANTIBODIES) [Concomitant]
  6. ANTIHYPERTENSIVES (ANTIHYPERTENSIVES) [Concomitant]

REACTIONS (3)
  - Pyrexia [None]
  - Dermatitis exfoliative [None]
  - Acute generalised exanthematous pustulosis [None]
